FAERS Safety Report 10262250 (Version 1)
Quarter: 2014Q2

REPORT INFORMATION
  Report Type: Report from Study
  Country: US (occurrence: US)
  Receive Date: 20140626
  Receipt Date: 20140626
  Transmission Date: 20141212
  Serious: Yes (Other)
  Sender: FDA-Public Use
  Company Number: US-ABBVIE-14P-163-1249374-00

PATIENT
  Age: 49 Year
  Sex: Male
  Weight: 94.43 kg

DRUGS (20)
  1. ANDROGEL [Suspect]
     Indication: HYPOGONADISM
     Dates: start: 2012, end: 2013
  2. ANDROGEL [Suspect]
     Indication: HYPOGONADISM
     Dosage: UNKNOWN DOSE
     Dates: start: 2007, end: 2012
  3. HUMIRA [Suspect]
     Indication: PSORIATIC ARTHROPATHY
     Dates: start: 2012
  4. HUMIRA [Suspect]
     Indication: PSORIASIS
  5. ADRIPA INSULIN PUMP [Concomitant]
     Indication: DIABETES MELLITUS
  6. SYNTHROID [Concomitant]
     Indication: HYPOTHYROIDISM
  7. T3 [Concomitant]
     Indication: HYPOTHYROIDISM
  8. MICARDIS HCT [Concomitant]
     Indication: HYPERTENSION
  9. PHENERGAN [Concomitant]
     Indication: IRRITABLE BOWEL SYNDROME
  10. LOPERAMIDE [Concomitant]
     Indication: ANTIDIARRHOEAL SUPPORTIVE CARE
  11. OMEPRAZOLE [Concomitant]
     Indication: GASTROOESOPHAGEAL REFLUX DISEASE
  12. TOPAMAX [Concomitant]
     Indication: MIGRAINE
  13. ZANAFLEX [Concomitant]
     Indication: HEADACHE
  14. PRAVASTATIN [Concomitant]
     Indication: BLOOD CHOLESTEROL INCREASED
  15. QUESTRAN LIGHT [Concomitant]
     Indication: CHOLECYSTECTOMY
  16. FLOMAX [Concomitant]
     Indication: MICTURITION DISORDER
  17. PROVIGIL [Concomitant]
     Indication: HYPERSOMNIA
  18. KLONOPIN [Concomitant]
     Indication: ANXIETY
  19. CYMBALTA [Concomitant]
     Indication: DEPRESSION
  20. CO Q 10 [Concomitant]
     Indication: NAUSEA

REACTIONS (10)
  - Adrenal neoplasm [Not Recovered/Not Resolved]
  - Impaired gastric emptying [Not Recovered/Not Resolved]
  - Vomiting [Not Recovered/Not Resolved]
  - Abdominal distension [Not Recovered/Not Resolved]
  - Headache [Not Recovered/Not Resolved]
  - Prostatic specific antigen increased [Unknown]
  - Panic attack [Not Recovered/Not Resolved]
  - Liver function test abnormal [Unknown]
  - Hair growth abnormal [Unknown]
  - Drug ineffective [Unknown]
